FAERS Safety Report 8954109 (Version 2)
Quarter: 2013Q1

REPORT INFORMATION
  Report Type: Spontaneous
  Country: DE (occurrence: DE)
  Receive Date: 20121207
  Receipt Date: 20130110
  Transmission Date: 20140127
  Serious: Yes (Hospitalization)
  Sender: FDA-Public Use
  Company Number: DE-JNJFOC-20121202018

PATIENT
  Age: 59 Year
  Sex: Male

DRUGS (4)
  1. REMICADE [Suspect]
     Indication: PSORIATIC ARTHROPATHY
     Route: 042
     Dates: start: 200910
  2. TAMSULOSIN [Concomitant]
     Route: 065
  3. CANDESARTAN [Concomitant]
     Route: 065
  4. MOXONIDIN [Concomitant]
     Route: 065

REACTIONS (1)
  - Ophthalmic herpes zoster [Unknown]
